FAERS Safety Report 9541348 (Version 1)
Quarter: 2013Q3

REPORT INFORMATION
  Report Type: Spontaneous
  Country: US (occurrence: US)
  Receive Date: 20130923
  Receipt Date: 20130923
  Transmission Date: 20140515
  Serious: No
  Sender: FDA-Public Use
  Company Number: US-B.I. PHARMACEUTICALS,INC./RIDGEFIELD-2013-BI-28846BP

PATIENT
  Age: 74 Year
  Sex: Female

DRUGS (6)
  1. COMBIVENT [Suspect]
     Indication: CHRONIC OBSTRUCTIVE PULMONARY DISEASE
     Dosage: STRENGTH: 20 MCG / 100 MCG; DAILY DOSE: 80 MCG/400 MCG
     Route: 055
     Dates: start: 201309, end: 201309
  2. OXYCONTIN [Concomitant]
     Indication: SPINAL FUSION SURGERY
     Route: 048
  3. CARVEDILOL [Concomitant]
     Indication: HEART RATE IRREGULAR
     Route: 048
  4. BENDARYL [Concomitant]
     Route: 048
  5. ALBUTEROL CAPSULE [Concomitant]
     Indication: ASTHMA
     Route: 048
  6. BACLOFEN [Concomitant]
     Route: 048

REACTIONS (3)
  - Lip swelling [Recovered/Resolved]
  - Oropharyngeal pain [Recovered/Resolved]
  - Wheezing [Not Recovered/Not Resolved]
